FAERS Safety Report 4977089-4 (Version None)
Quarter: 2006Q1

REPORT INFORMATION
  Report Type: 
  Country: None (occurrence: None)
  Receive Date: 20060223
  Receipt Date: 20050330
  Transmission Date: 20060701
  Serious: Yes (Other)
  Sender: FDA-Public Use
  Company Number: HQWYE869108APR05

PATIENT
  Sex: Female
  Weight: 64.92 kg

DRUGS (1)
  1. EFFEXOR [Suspect]
     Indication: WEIGHT DECREASED
     Dosage: 37.5 MG 1X PER 1 TOT, ORAL
     Route: 048
     Dates: start: 19980101, end: 19980101

REACTIONS (2)
  - DIZZINESS [None]
  - SENSATION OF HEAVINESS [None]
